FAERS Safety Report 8011142-6 (Version None)
Quarter: 2011Q4

REPORT INFORMATION
  Report Type: 
  Country: None (occurrence: None)
  Receive Date: 20111228
  Receipt Date: 20111215
  Transmission Date: 20120403
  Serious: Yes (Disabling)
  Sender: FDA-Public Use
  Company Number: PHHY2011DE109759

PATIENT
  Age: 42 Year
  Sex: Male
  Weight: 88 kg

DRUGS (7)
  1. BISOPROLOL [Concomitant]
     Indication: HYPERTENSION
     Dosage: 5 MG, BID
  2. CLOZAPINE [Suspect]
     Indication: SCHIZOPHRENIA
     Dosage: 100 MG, BID
     Route: 048
  3. LEVOTHYROXINE SODIUM [Concomitant]
  4. LEVOTHYROXINE SODIUM [Concomitant]
     Dosage: 75 UG ONCE DAILY
  5. AMISULPRIDE [Concomitant]
     Dosage: 400 MG, BID
  6. EPROSARTAN [Concomitant]
     Indication: HYPERTENSION
     Dosage: 600 MG, ONCE DAILY
  7. POTASSIUM IODIDE [Concomitant]

REACTIONS (4)
  - TUBULOINTERSTITIAL NEPHRITIS [None]
  - ILEUS [None]
  - BLOOD CREATININE INCREASED [None]
  - NEPHROSCLEROSIS [None]
